FAERS Safety Report 9363999 (Version 2)
Quarter: 2013Q3

REPORT INFORMATION
  Report Type: Spontaneous
  Country: US (occurrence: None)
  Receive Date: 20130619
  Receipt Date: 20130827
  Transmission Date: 20140515
  Serious: Yes (Hospitalization, Other)
  Sender: FDA-Public Use
  Company Number: ACO_36398_2013

PATIENT
  Age: 51 Year
  Sex: Female
  Weight: 74.8 kg

DRUGS (1)
  1. AMPYRA (DALFAMPRIDINE) TABLET, 10MG [Suspect]
     Indication: MULTIPLE SCLEROSIS
     Dates: end: 2010

REACTIONS (3)
  - Renal failure [None]
  - Nephropathy [None]
  - Ureteral disorder [None]
